FAERS Safety Report 4715936-1 (Version None)
Quarter: 2005Q3

REPORT INFORMATION
  Report Type: 
  Country: None (occurrence: None)
  Receive Date: 20050718
  Receipt Date: 20041209
  Transmission Date: 20060218
  Serious: Yes (Hospitalization)
  Sender: FDA-Public Use
  Company Number: US-MERCK-0412USA01163

PATIENT
  Age: 46 Year
  Sex: Male

DRUGS (7)
  1. VIOXX [Suspect]
     Route: 048
  2. VIOXX [Suspect]
     Route: 048
  3. AVALIDE [Concomitant]
     Route: 065
  4. FLUOXETINE [Concomitant]
     Route: 065
  5. COUMADIN [Concomitant]
     Route: 065
     Dates: start: 20040712
  6. TARKA [Concomitant]
     Route: 065
  7. LOVENOX [Concomitant]
     Route: 058
     Dates: start: 20040712

REACTIONS (13)
  - DEEP VEIN THROMBOSIS [None]
  - DERMATITIS ALLERGIC [None]
  - HAEMARTHROSIS [None]
  - HYPERCOAGULATION [None]
  - HYPERTENSION [None]
  - LABORATORY TEST ABNORMAL [None]
  - PERIPHERAL COLDNESS [None]
  - PERONEAL NERVE PALSY [None]
  - RASH [None]
  - RASH PUSTULAR [None]
  - SKIN DISCOLOURATION [None]
  - THERMAL BURN [None]
  - THROMBOPHLEBITIS SUPERFICIAL [None]
